FAERS Safety Report 6348807-8 (Version None)
Quarter: 2009Q3

REPORT INFORMATION
  Report Type: 
  Country: None (occurrence: None)
  Receive Date: 20090908
  Receipt Date: 20090902
  Transmission Date: 20100115
  Serious: Yes (Hospitalization)
  Sender: FDA-Public Use
  Company Number: A0805602A

PATIENT
  Age: 82 Year
  Sex: Female

DRUGS (6)
  1. ASPIRIN [Suspect]
     Indication: CARDIOVASCULAR EVENT PROPHYLAXIS
     Dosage: 81 MG / PER DAY / ORAL
     Route: 048
     Dates: end: 20090801
  2. FLUTICASONE+SALMETEROL [Concomitant]
  3. THEOPHYLLINE [Concomitant]
  4. BLOOD PRESSURE MEDICATION [Concomitant]
  5. FENTANYL [Concomitant]
  6. SALBUTAMOL SULPHATE [Concomitant]

REACTIONS (2)
  - ASTHMA [None]
  - PNEUMONIA [None]
